FAERS Safety Report 8086102-X (Version None)
Quarter: 2012Q1

REPORT INFORMATION
  Report Type: 
  Country: None (occurrence: None)
  Receive Date: 20120128
  Receipt Date: 20110601
  Transmission Date: 20120608
  Serious: No
  Sender: FDA-Public Use
  Company Number: US-ABBOTT-11P-163-0730177-00

PATIENT
  Sex: Female
  Weight: 78.088 kg

DRUGS (4)
  1. CONTRACEPTIVES [Concomitant]
     Indication: CONTRACEPTION
     Dosage: PILLS
     Route: 048
  2. HUMIRA [Suspect]
     Indication: PSORIATIC ARTHROPATHY
     Dates: start: 20100801, end: 20100901
  3. BENICAR [Concomitant]
     Indication: HYPERTENSION
  4. HUMIRA [Suspect]
     Dates: start: 20110501

REACTIONS (1)
  - TUBERCULIN TEST POSITIVE [None]
